FAERS Safety Report 4300153-X (Version None)
Quarter: 2004Q1

REPORT INFORMATION
  Report Type: 
  Country: None (occurrence: None)
  Receive Date: 20040209
  Receipt Date: 20040121
  Transmission Date: 20041129
  Serious: Yes (Death)
  Sender: FDA-Public Use
  Company Number: 234944

PATIENT
  Sex: Male

DRUGS (1)
  1. NOVOSEVEN [Suspect]

REACTIONS (1)
  - DEATH [None]
